FAERS Safety Report 4878478-9 (Version None)
Quarter: 2006Q1

REPORT INFORMATION
  Report Type: 
  Country: None (occurrence: None)
  Receive Date: 20060109
  Receipt Date: 20060109
  Transmission Date: 20060701
  Serious: Yes (Hospitalization)
  Sender: FDA-Public Use
  Company Number: None

PATIENT
  Age: 51 Year
  Sex: Male

DRUGS (2)
  1. VIAGRA [Suspect]
     Indication: ERECTILE DYSFUNCTION
     Dosage: 50 MG PRN
  2. VIAGRA [Suspect]
     Indication: LIBIDO DISORDER
     Dosage: 50 MG PRN

REACTIONS (5)
  - ABNORMAL SENSATION IN EYE [None]
  - HEADACHE [None]
  - OPTIC NEURITIS [None]
  - VISION BLURRED [None]
  - VISUAL DISTURBANCE [None]
